FAERS Safety Report 18554514 (Version 3)
Quarter: 2022Q3

REPORT INFORMATION
  Report Type: Spontaneous
  Country: CA (occurrence: CA)
  Receive Date: 20201127
  Receipt Date: 20220712
  Transmission Date: 20221027
  Serious: Yes (Death, Hospitalization, Other)
  Sender: FDA-Public Use
  Company Number: CA-GLAXOSMITHKLINE-CA2020GSK234347

PATIENT

DRUGS (2)
  1. AVANDIA [Suspect]
     Active Substance: ROSIGLITAZONE MALEATE
     Indication: Diabetes mellitus
     Dosage: 4 MG, QD
     Route: 048
     Dates: start: 20041006, end: 20070214
  2. AVANDIA [Suspect]
     Active Substance: ROSIGLITAZONE MALEATE
     Dosage: 4 MG, BID
     Route: 048
     Dates: start: 20050511

REACTIONS (14)
  - Death [Fatal]
  - Acute myocardial infarction [Unknown]
  - Cardiac failure congestive [Unknown]
  - Renal failure [Unknown]
  - Angina unstable [Unknown]
  - Atrial fibrillation [Unknown]
  - Cardiac failure [Unknown]
  - Coronary artery bypass [Unknown]
  - Cardiac disorder [Unknown]
  - Coronary artery disease [Unknown]
  - Coronary arterial stent insertion [Unknown]
  - Aortic valve stenosis [Unknown]
  - Cardiomegaly [Unknown]
  - Tricuspid valve replacement [Unknown]
